FAERS Safety Report 14146832 (Version 8)
Quarter: 2018Q1

REPORT INFORMATION
  Report Type: Report from Study
  Country: None (occurrence: GB)
  Receive Date: 20171101
  Receipt Date: 20180326
  Transmission Date: 20180508
  Serious: Yes (Hospitalization)
  Sender: FDA-Public Use
  Company Number: GB-ABBVIE-17K-167-2142707-00

PATIENT
  Age: 62 Year
  Sex: Male

DRUGS (4)
  1. MADOPAR [Concomitant]
     Active Substance: BENSERAZIDE HYDROCHLORIDE\LEVODOPA
     Indication: PRODUCT USED FOR UNKNOWN INDICATION
     Route: 048
  2. DUODOPA [Suspect]
     Active Substance: CARBIDOPA\LEVODOPA
     Dosage: MORNING DOSE: 10 ML?CONT. RATE: 5 ML
     Route: 050
  3. DUODOPA [Suspect]
     Active Substance: CARBIDOPA\LEVODOPA
     Route: 050
  4. DUODOPA [Suspect]
     Active Substance: CARBIDOPA\LEVODOPA
     Indication: PARKINSON^S DISEASE
     Dosage: 100ML CASSETTE, MORNING DOSE: 9 ML?CONT. RATE: 4.6 ML
     Route: 050

REACTIONS (19)
  - Wrong technique in device usage process [Unknown]
  - Deformity [Unknown]
  - Device dislocation [Recovered/Resolved]
  - Mobility decreased [Unknown]
  - Device leakage [Unknown]
  - Dysphonia [Unknown]
  - Tremor [Unknown]
  - Speech disorder [Recovering/Resolving]
  - On and off phenomenon [Unknown]
  - General physical health deterioration [Unknown]
  - General physical condition abnormal [Unknown]
  - Wrong device used [Unknown]
  - Device dislocation [Unknown]
  - Bedridden [Unknown]
  - Incorrect dose administered [Unknown]
  - Fall [Unknown]
  - Device issue [Unknown]
  - Device loosening [Unknown]
  - Musculoskeletal stiffness [Unknown]

NARRATIVE: CASE EVENT DATE: 201710
